FAERS Safety Report 10050610 (Version 1)
Quarter: 2014Q2

REPORT INFORMATION
  Report Type: Spontaneous
  Country: US (occurrence: US)
  Receive Date: 20140401
  Receipt Date: 20140401
  Transmission Date: 20141212
  Serious: No
  Sender: FDA-Public Use
  Company Number: US-ASTRAZENECA-2013SE52642

PATIENT
  Age: 42 Year
  Sex: Female
  Weight: 68 kg

DRUGS (5)
  1. IRON [Concomitant]
     Indication: ANAEMIA
     Dosage: 1 DAILY
     Route: 048
     Dates: start: 2012
  2. VITAMIN D [Concomitant]
     Indication: SURGERY
     Dosage: 50,000U WEEK
     Route: 048
     Dates: start: 201303
  3. NEXIUM [Suspect]
     Indication: OESOPHAGEAL ULCER
     Route: 048
     Dates: start: 2006
  4. NEXIUM [Suspect]
     Indication: OESOPHAGEAL ULCER
     Route: 048
     Dates: start: 2006
  5. MULTI VITAMIN [Concomitant]
     Dosage: 1 DAILY
     Route: 048
     Dates: start: 2011

REACTIONS (4)
  - Helicobacter infection [Recovered/Resolved]
  - Drug ineffective [Not Recovered/Not Resolved]
  - Oesophageal ulcer [Not Recovered/Not Resolved]
  - Off label use [Unknown]
